FAERS Safety Report 4511022-4 (Version None)
Quarter: 2004Q4

REPORT INFORMATION
  Report Type: 
  Country: None (occurrence: None)
  Receive Date: 20041018
  Receipt Date: 20040908
  Transmission Date: 20050328
  Serious: No
  Sender: FDA-Public Use
  Company Number: 208562

PATIENT
  Age: 33 Year
  Sex: Male
  Weight: 83 kg

DRUGS (7)
  1. XOLAIR [Suspect]
     Indication: ASTHMA
     Dosage: 150 MG, SUBCUTANEOUS
     Route: 058
     Dates: start: 20040727
  2. ADVAIR (SALMETEROL XINAFOATE, FLUTICASONE PROPIONATE) [Concomitant]
  3. SINGULAIR [Concomitant]
  4. THEOPHYLLINE [Concomitant]
  5. ALLEGRA [Concomitant]
  6. ALBUTEROL (ALBUTEROL SULFATE, ALBUTEROL) [Concomitant]
  7. FOSAMAX [Concomitant]

REACTIONS (1)
  - ARTHRALGIA [None]
